FAERS Safety Report 5816580-5 (Version None)
Quarter: 2008Q3

REPORT INFORMATION
  Report Type: 
  Country: None (occurrence: None)
  Receive Date: 20080721
  Receipt Date: 20080711
  Transmission Date: 20090109
  Serious: Yes (Hospitalization)
  Sender: FDA-Public Use
  Company Number: BR-ROCHE-574344

PATIENT
  Age: 16 Year
  Sex: Male
  Weight: 62 kg

DRUGS (1)
  1. ROACUTAN [Suspect]
     Indication: ACNE
     Route: 048
     Dates: start: 20070501, end: 20071201

REACTIONS (7)
  - ALOPECIA [None]
  - DYSPNOEA [None]
  - HYPERTENSION [None]
  - NEPHROTIC SYNDROME [None]
  - PROTEINURIA [None]
  - SWELLING [None]
  - WEIGHT INCREASED [None]
